FAERS Safety Report 8824775 (Version 1)
Quarter: 2012Q4

REPORT INFORMATION
  Report Type: 
  Country: US (occurrence: US)
  Receive Date: 20121004
  Receipt Date: 20121004
  Transmission Date: 20130627
  Serious: No
  Sender: FDA-Public Use
  Company Number: US-BAYER-2012-095121

PATIENT
  Age: 63 Year
  Sex: Male

DRUGS (1)
  1. LEVITRA [Suspect]
     Indication: ERECTILE DYSFUNCTION
     Dosage: 10 mg, PRN
     Route: 048
     Dates: end: 2012

REACTIONS (1)
  - Abdominal pain upper [Not Recovered/Not Resolved]
